FAERS Safety Report 6384599-4 (Version None)
Quarter: 2009Q4

REPORT INFORMATION
  Report Type: 
  Country: None (occurrence: None)
  Receive Date: 20091001
  Receipt Date: 20090918
  Transmission Date: 20100525
  Serious: Yes (Hospitalization)
  Sender: FDA-Public Use
  Company Number: PHHY2009MX36294

PATIENT
  Sex: Female

DRUGS (1)
  1. DIOVAN HCT [Suspect]
     Indication: HYPERTENSION
     Dosage: 1 DF (160/12.5 MG) PER DAY
     Dates: start: 20080501

REACTIONS (3)
  - JOINT INJURY [None]
  - KNEE ARTHROPLASTY [None]
  - PAIN [None]
